FAERS Safety Report 6895315-1 (Version None)
Quarter: 2010Q3

REPORT INFORMATION
  Report Type: 
  Country: None (occurrence: None)
  Receive Date: 20100708
  Receipt Date: 20090918
  Transmission Date: 20110219
  Serious: Yes (Other)
  Sender: FDA-Public Use
  Company Number: 2009271836

PATIENT
  Age: 49 Year
  Sex: Female
  Weight: 102 kg

DRUGS (3)
  1. CHANTIX [Suspect]
     Indication: SMOKING CESSATION THERAPY
     Dosage: 1 MG, 2X/DAY
     Dates: start: 20090701
  2. METOPROLOL SUCCINATE [Concomitant]
  3. LISINOPRIL [Concomitant]

REACTIONS (3)
  - HYPERPHAGIA [None]
  - TOBACCO USER [None]
  - WEIGHT INCREASED [None]
